FAERS Safety Report 7578047-6 (Version None)
Quarter: 2011Q2

REPORT INFORMATION
  Report Type: 
  Country: None (occurrence: None)
  Receive Date: 20110621
  Receipt Date: 20110607
  Transmission Date: 20111010
  Serious: Yes (Other)
  Sender: FDA-Public Use
  Company Number: FR-JNJFOC-20110606235

PATIENT
  Age: 76 Year
  Sex: Male

DRUGS (1)
  1. DECITABINE [Suspect]
     Indication: MYELODYSPLASTIC SYNDROME
     Dosage: CYCLE 1 INTRAVENOUS
     Route: 042

REACTIONS (1)
  - INTERSTITIAL LUNG DISEASE [None]
